FAERS Safety Report 6384695-1 (Version None)
Quarter: 2009Q4

REPORT INFORMATION
  Report Type: 
  Country: None (occurrence: None)
  Receive Date: 20091001
  Receipt Date: 20090922
  Transmission Date: 20100525
  Serious: Yes (Hospitalization)
  Sender: FDA-Public Use
  Company Number: US-ASTRAZENECA-2009SE14500

PATIENT
  Age: 50 Year
  Sex: Female
  Weight: 59 kg

DRUGS (4)
  1. SEROQUEL [Suspect]
     Indication: INSOMNIA
     Route: 048
     Dates: start: 20090301, end: 20090922
  2. LITHIUM [Concomitant]
  3. PAXIL [Concomitant]
  4. ATIVAN [Concomitant]

REACTIONS (4)
  - IRRITABILITY [None]
  - LETHARGY [None]
  - NEGATIVE THOUGHTS [None]
  - THOUGHT BLOCKING [None]
